FAERS Safety Report 4506458-1 (Version None)
Quarter: 2004Q4

REPORT INFORMATION
  Report Type: 
  Country: None (occurrence: None)
  Receive Date: 20041122
  Receipt Date: 20040915
  Transmission Date: 20050328
  Serious: Yes (Death, Hospitalization)
  Sender: FDA-Public Use
  Company Number: NSADSS2002011303

PATIENT
  Sex: Female
  Weight: 228.16 kg

DRUGS (8)
  1. INFLIXIMAB, RECOMBINANT [Suspect]
  2. INFLIXIMAB, RECOMBINANT [Suspect]
  3. INFLIXIMAB, RECOMBINANT [Suspect]
     Indication: PULMONARY SARCOIDOSIS
  4. ZAROXOLYN [Concomitant]
     Indication: DRUG USE FOR UNKNOWN INDICATION
     Dates: start: 20011213
  5. KLOR-CON [Concomitant]
     Indication: DRUG USE FOR UNKNOWN INDICATION
     Route: 049
  6. DEMADEX [Concomitant]
     Indication: DRUG USE FOR UNKNOWN INDICATION
     Route: 049
     Dates: start: 20011213
  7. LASIX [Concomitant]
     Indication: DRUG USE FOR UNKNOWN INDICATION
     Route: 049
     Dates: start: 20020318
  8. PREDNISONE [Concomitant]
     Route: 049
     Dates: start: 20010809

REACTIONS (7)
  - BLOOD CREATINE PHOSPHOKINASE INCREASED [None]
  - CARDIAC ARREST [None]
  - CELLULITIS [None]
  - CONDITION AGGRAVATED [None]
  - PULMONARY EMBOLISM [None]
  - RENAL FAILURE ACUTE [None]
  - RHABDOMYOLYSIS [None]
